FAERS Safety Report 12297936 (Version 3)
Quarter: 2016Q3

REPORT INFORMATION
  Report Type: Spontaneous
  Country: US (occurrence: US)
  Receive Date: 20160422
  Receipt Date: 20160808
  Transmission Date: 20161109
  Serious: Yes (Other)
  Sender: FDA-Public Use
  Company Number: US-PFIZER INC-2016214284

PATIENT
  Age: 85 Year
  Sex: Female
  Weight: 43.99 kg

DRUGS (2)
  1. IBRANCE [Suspect]
     Active Substance: PALBOCICLIB
     Dosage: 75 MG, CYCLIC (D 1-21 Q 28 DAYS)
     Route: 048
     Dates: start: 20160309, end: 201605
  2. IBRANCE [Suspect]
     Active Substance: PALBOCICLIB
     Indication: BREAST CANCER METASTATIC
     Dosage: 75 MG, CYCLIC (DAYS 1 TO 21 EVERY 28 DAYS)
     Route: 048
     Dates: start: 20160330

REACTIONS (2)
  - Blood glucose increased [Unknown]
  - Breast haemorrhage [Unknown]

NARRATIVE: CASE EVENT DATE: 2016
